FAERS Safety Report 25540690 (Version 4)
Quarter: 2025Q4

REPORT INFORMATION
  Report Type: Report from Study
  Country: US (occurrence: US)
  Receive Date: 20250710
  Receipt Date: 20251031
  Transmission Date: 20260117
  Serious: No
  Sender: TRAVERE THERAPEUTICS
  Company Number: US-TRAVERE-2025TVT01055

PATIENT
  Age: 41 Year
  Sex: Female

DRUGS (3)
  1. FILSPARI [Suspect]
     Active Substance: SPARSENTAN
     Indication: IgA nephropathy
     Route: 048
     Dates: start: 20250605
  2. FILSPARI [Suspect]
     Active Substance: SPARSENTAN
     Route: 048
  3. FILSPARI [Suspect]
     Active Substance: SPARSENTAN
     Dosage: DOSE DECREASE
     Route: 048

REACTIONS (6)
  - Glomerular filtration rate decreased [Recovered/Resolved]
  - Hypotension [Unknown]
  - Anaemia [Unknown]
  - Proteinuria [Unknown]
  - Drug intolerance [Unknown]
  - Liver function test increased [Unknown]
